FAERS Safety Report 16692147 (Version 2)
Quarter: 2019Q3

REPORT INFORMATION
  Report Type: Spontaneous
  Country: ES (occurrence: ES)
  Receive Date: 20190812
  Receipt Date: 20190816
  Transmission Date: 20191004
  Serious: Yes (Other)
  Sender: FDA-Public Use
  Company Number: ES-MYLANLABS-2019M1074409

PATIENT
  Age: 66 Year
  Sex: Male

DRUGS (6)
  1. ESCITALOPRAM [Suspect]
     Active Substance: ESCITALOPRAM OXALATE
     Indication: SCIATICA
     Dosage: 1/2-0-0
     Route: 048
     Dates: start: 201901, end: 20190223
  2. NEBIVOLOL. [Concomitant]
     Active Substance: NEBIVOLOL
     Dosage: UNK
     Route: 048
  3. ATORVASTATINA                      /01326101/ [Concomitant]
     Active Substance: ATORVASTATIN
     Dosage: UNK
     Route: 048
  4. GABAPENTIN. [Interacting]
     Active Substance: GABAPENTIN
     Indication: SCIATICA
     Dosage: 1-1-1. 1? SEMANA 0-0-1 , 2? SEMANA 0-1-1, 3? SEMANA 1-1-1 Y SEGUIR HASTA NUEVA REVISI?N
     Route: 048
     Dates: start: 201901
  5. ACETYLSALICYLIC ACID [Concomitant]
     Active Substance: ASPIRIN
     Dosage: UNK
     Route: 048
  6. ZYTRAM BID [Interacting]
     Active Substance: TRAMADOL HYDROCHLORIDE
     Indication: SCIATICA
     Dosage: 1-0-1. 1? SEMANA 0-0-1 , 2? SEMANA 1-0-1 Y SEGUIR HASTA REVISI?N
     Route: 048
     Dates: start: 201901

REACTIONS (2)
  - Urinary retention [Recovered/Resolved]
  - Drug interaction [Unknown]

NARRATIVE: CASE EVENT DATE: 20190128
